FAERS Safety Report 9305020 (Version 4)
Quarter: 2014Q4

REPORT INFORMATION
  Report Type: Spontaneous
  Country: US (occurrence: None)
  Receive Date: 20130521
  Receipt Date: 20141224
  Transmission Date: 20150529
  Serious: Yes (Hospitalization, Other)
  Sender: FDA-Public Use
  Company Number: JPI-P-031749

PATIENT
  Age: 74 Year
  Sex: Male
  Weight: 82.7 kg

DRUGS (4)
  1. CYMBALTA [Concomitant]
     Active Substance: DULOXETINE HYDROCHLORIDE
  2. XYREM [Suspect]
     Active Substance: SODIUM OXYBATE
     Indication: INSOMNIA
     Route: 048
     Dates: start: 20050610, end: 2005
  3. ANTIHYPERTENSIVES (MEDICATIONS FOR HIGH BLOOD PRESSURE) [Concomitant]
  4. FLOMAX [Concomitant]
     Active Substance: TAMSULOSIN HYDROCHLORIDE

REACTIONS (8)
  - Oxygen saturation decreased [None]
  - Hip fracture [None]
  - Disorientation [None]
  - Off label use [None]
  - Somnolence [None]
  - Investigation [None]
  - Insomnia [None]
  - Fall [None]

NARRATIVE: CASE EVENT DATE: 201304
